FAERS Safety Report 7083661-0 (Version None)
Quarter: 2010Q4

REPORT INFORMATION
  Report Type: 
  Country: None (occurrence: None)
  Receive Date: 20101104
  Receipt Date: 20101022
  Transmission Date: 20110411
  Serious: Yes (Death)
  Sender: FDA-Public Use
  Company Number: JP-ELI_LILLY_AND_COMPANY-JP201009006445

PATIENT
  Sex: Male
  Weight: 75 kg

DRUGS (8)
  1. CYMBALTA [Suspect]
     Indication: DEPRESSION
     Dosage: 20 MG, DAILY (1/D)
     Route: 048
     Dates: start: 20100828, end: 20100903
  2. CYMBALTA [Suspect]
     Dosage: 40 MG, DAILY (1/D)
     Route: 048
     Dates: start: 20100904
  3. CLOTIAZEPAM [Concomitant]
     Indication: DEPRESSION
     Dosage: 10 MG, DAILY (1/D)
     Route: 048
     Dates: start: 20100828
  4. SILECE [Concomitant]
     Indication: INSOMNIA
     Dosage: 1 MG, DAILY (1/D)
     Route: 048
     Dates: start: 20100904, end: 20100913
  5. HALCION [Concomitant]
     Indication: INSOMNIA
     Dosage: 0.25 MG, DAILY (1/D)
     Route: 048
     Dates: start: 20100913
  6. ZANTAC [Concomitant]
     Dosage: 150 MG, DAILY (1/D)
     Route: 048
     Dates: start: 20100911, end: 20100913
  7. SELTEPNON [Concomitant]
     Dosage: UNK, UNK
     Route: 048
     Dates: start: 20100910
  8. MAGLAX [Concomitant]
     Dosage: 990 MG, DAILY (1/D)
     Route: 048
     Dates: start: 20100913

REACTIONS (3)
  - COMPLETED SUICIDE [None]
  - DECREASED APPETITE [None]
  - NAUSEA [None]
